FAERS Safety Report 5035253-2 (Version None)
Quarter: 2006Q2

REPORT INFORMATION
  Report Type: 
  Country: None (occurrence: None)
  Receive Date: 20060522
  Receipt Date: 20060224
  Transmission Date: 20061013
  Serious: Yes (Other)
  Sender: FDA-Public Use
  Company Number: US-JNJFOC-20060206166

PATIENT
  Age: 46 Year
  Sex: Male
  Weight: 74.3899 kg

DRUGS (3)
  1. RISPERDAL CONSTA [Suspect]
     Indication: SCHIZOPHRENIA, PARANOID TYPE
     Dosage: 25 MG, 1 IN 2 WEEK, INTRAMUSCULAR
     Route: 030
     Dates: start: 20051001
  2. RISPERDAL [Suspect]
     Indication: SCHIZOPHRENIA, PARANOID TYPE
     Dosage: 3 MG, 1 IN 1 DAY, ORAL
     Route: 048
     Dates: start: 20051001
  3. CARDIAC MEDICATIONS (CARDIAC THERAPY) [Concomitant]

REACTIONS (1)
  - WEIGHT INCREASED [None]
